FAERS Safety Report 5678349-4 (Version None)
Quarter: 2008Q1

REPORT INFORMATION
  Report Type: 
  Country: None (occurrence: None)
  Receive Date: 20080320
  Receipt Date: 20080313
  Transmission Date: 20080703
  Serious: Yes (Death, Hospitalization)
  Sender: FDA-Public Use
  Company Number: 2008SP004453

PATIENT
  Age: 78 Year
  Sex: Male
  Weight: 68 kg

DRUGS (2)
  1. TEMOZOLOMIDE [Suspect]
     Indication: ACUTE MYELOID LEUKAEMIA
     Dosage: 180 MG; QD; PO; 370 MG; QD; PO
     Route: 048
     Dates: start: 20080208, end: 20080221
  2. TEMOZOLOMIDE [Suspect]
     Indication: ACUTE MYELOID LEUKAEMIA
     Dosage: 180 MG; QD; PO; 370 MG; QD; PO
     Route: 048
     Dates: start: 20080222, end: 20080228

REACTIONS (17)
  - ATRIAL FIBRILLATION [None]
  - BLAST CRISIS IN MYELOGENOUS LEUKAEMIA [None]
  - CARDIAC ARREST [None]
  - CARDIAC FAILURE [None]
  - CONSTIPATION [None]
  - DIALYSIS [None]
  - ESCHERICHIA SEPSIS [None]
  - FATIGUE [None]
  - FEBRILE NEUTROPENIA [None]
  - HAEMOGLOBIN DECREASED [None]
  - HYPOTENSION [None]
  - NAUSEA [None]
  - PLATELET COUNT DECREASED [None]
  - RENAL FAILURE ACUTE [None]
  - RESPIRATORY FAILURE [None]
  - SEPTIC SHOCK [None]
  - WHITE BLOOD CELL COUNT DECREASED [None]
